FAERS Safety Report 7438177-6 (Version None)
Quarter: 2011Q2

REPORT INFORMATION
  Report Type: 
  Country: None (occurrence: None)
  Receive Date: 20110426
  Receipt Date: 20101208
  Transmission Date: 20111010
  Serious: Yes (Hospitalization, Other)
  Sender: FDA-Public Use
  Company Number: US-BAYER-201023182NA

PATIENT
  Age: 26 Year
  Sex: Female
  Weight: 63.039 kg

DRUGS (12)
  1. AMOXICILLIN AND CLAVULANATE POTASSIUM [Concomitant]
  2. IBUPROFEN [Concomitant]
     Dosage: UNK UNK, PRN
     Dates: start: 20000101
  3. YASMIN [Suspect]
     Indication: ACNE
  4. CYCLOBENZAPRINE [Concomitant]
  5. PEPCID AC [Concomitant]
     Indication: GASTRIC PH DECREASED
     Dosage: UNK UNK, PRN
  6. YAZ [Suspect]
     Indication: CONTRACEPTION
     Dosage: UNK UNK, QD
     Route: 048
     Dates: start: 20060801, end: 20090501
  7. YAZ [Suspect]
     Indication: ACNE
  8. ALKA-SELTZER [ACETYLSALICYLIC ACID] [Concomitant]
     Indication: ABDOMINAL PAIN UPPER
     Dosage: UNK UNK, PRN
  9. TUMS [CALCIUM CARBONATE] [Concomitant]
     Indication: ABDOMINAL PAIN UPPER
     Dosage: UNK UNK, PRN
  10. YASMIN [Suspect]
     Indication: CONTRACEPTION
     Dosage: UNK UNK, QD
     Route: 048
     Dates: start: 20050702, end: 20060701
  11. HYDROCODONE [Concomitant]
  12. IBUPROFEN (ADVIL) [Concomitant]
     Indication: ABDOMINAL PAIN UPPER
     Dosage: UNK UNK, PRN

REACTIONS (4)
  - MENTAL DISORDER [None]
  - BILIARY COLIC [None]
  - CHOLELITHIASIS [None]
  - CHOLECYSTITIS CHRONIC [None]
